FAERS Safety Report 6545711-7 (Version None)
Quarter: 2010Q1

REPORT INFORMATION
  Report Type: 
  Country: None (occurrence: None)
  Receive Date: 20100121
  Receipt Date: 20100119
  Transmission Date: 20100710
  Serious: Yes (Death)
  Sender: FDA-Public Use
  Company Number: PHHY2009CA56270

PATIENT
  Sex: Female

DRUGS (10)
  1. CLOZARIL [Suspect]
     Indication: SCHIZOAFFECTIVE DISORDER
     Dosage: UNK
     Dates: start: 20040927
  2. CLOZARIL [Suspect]
     Dosage: 400 MG HS
     Route: 048
  3. NEXIUM [Concomitant]
     Dosage: 40 MG DAILY
     Route: 048
  4. SENOKOT [Concomitant]
     Dosage: 2 TABLETS BID
     Route: 048
  5. REMERON [Concomitant]
     Dosage: 30 MG 1.5 TABLETS HS
     Route: 048
  6. CELEBREX [Concomitant]
     Dosage: 100 MG, BID
     Route: 048
  7. EFFEXOR XR [Concomitant]
     Dosage: 225 MG DAILY
     Route: 048
  8. COLACE [Concomitant]
     Dosage: 2 DF, BID
     Route: 048
  9. ATIVAN [Concomitant]
     Dosage: 1 MG, BID PRN
     Route: 048
  10. TEMAZEPAM [Concomitant]
     Dosage: 15 MG 2 TABLETS HS
     Route: 048

REACTIONS (1)
  - DEATH [None]
